FAERS Safety Report 7488151-9 (Version None)
Quarter: 2011Q2

REPORT INFORMATION
  Report Type: 
  Country: None (occurrence: None)
  Receive Date: 20110518
  Receipt Date: 20110511
  Transmission Date: 20111010
  Serious: Yes (Other)
  Sender: FDA-Public Use
  Company Number: GB-ROCHE-770636

PATIENT
  Sex: Female
  Weight: 69.4 kg

DRUGS (4)
  1. XELODA [Suspect]
     Indication: PALLIATIVE CARE
     Route: 048
     Dates: start: 20110217
  2. DOCETAXEL [Suspect]
     Indication: PALLIATIVE CARE
     Route: 042
     Dates: start: 20101216, end: 20110217
  3. LANSOPRAZOLE [Concomitant]
     Route: 048
     Dates: start: 20101001
  4. AVASTIN [Suspect]
     Indication: PALLIATIVE CARE
     Route: 042
     Dates: start: 20110106, end: 20110217

REACTIONS (1)
  - PALMAR-PLANTAR ERYTHRODYSAESTHESIA SYNDROME [None]
